FAERS Safety Report 4266049-7 (Version None)
Quarter: 2004Q1

REPORT INFORMATION
  Report Type: 
  Country: None (occurrence: None)
  Receive Date: 20040106
  Receipt Date: 20031229
  Transmission Date: 20041129
  Serious: Yes (Other)
  Sender: FDA-Public Use
  Company Number: 200311476JP

PATIENT
  Age: 83 Year
  Sex: Male

DRUGS (5)
  1. LASIX [Suspect]
  2. LOSARTAN POTASSIUM (NU-LOTAN) TABLETS [Suspect]
     Dosage: PO
     Route: 048
  3. INDOMETHACIN [Suspect]
     Indication: HYPERPYREXIA
     Dosage: R
  4. ISOSORBIDE DINITRATE [Concomitant]
  5. ZOPICLONE [Concomitant]

REACTIONS (7)
  - BODY TEMPERATURE DECREASED [None]
  - CHILLS [None]
  - DEHYDRATION [None]
  - DEPRESSED LEVEL OF CONSCIOUSNESS [None]
  - HYPERPYREXIA [None]
  - HYPOTENSION [None]
  - SHOCK [None]
